FAERS Safety Report 5834469-2 (Version None)
Quarter: 2008Q3

REPORT INFORMATION
  Report Type: 
  Country: None (occurrence: None)
  Receive Date: 20080805
  Receipt Date: 20080716
  Transmission Date: 20090109
  Serious: No
  Sender: FDA-Public Use
  Company Number: US-BOEHRINGER INGELHEIM GMBH, GERMANY-2008-BP-11128BP

PATIENT
  Age: 83 Year
  Sex: Male

DRUGS (2)
  1. FLOMAX [Suspect]
     Indication: BENIGN PROSTATIC HYPERPLASIA
     Route: 048
     Dates: start: 20050101
  2. AVODART [Concomitant]
     Indication: BENIGN PROSTATIC HYPERPLASIA

REACTIONS (2)
  - INSOMNIA [None]
  - RHINORRHOEA [None]
